FAERS Safety Report 15378547 (Version 2)
Quarter: 2018Q3

REPORT INFORMATION
  Report Type: Spontaneous
  Country: RO (occurrence: RO)
  Receive Date: 20180913
  Receipt Date: 20180921
  Transmission Date: 20181010
  Serious: Yes (Hospitalization, Other)
  Sender: FDA-Public Use
  Company Number: RO-MYLANLABS-2018M1066559

PATIENT
  Age: 83 Year
  Sex: Male

DRUGS (1)
  1. INDAPAMIDE. [Suspect]
     Active Substance: INDAPAMIDE
     Indication: PRODUCT USED FOR UNKNOWN INDICATION
     Dosage: UNK
     Route: 065

REACTIONS (5)
  - Hyponatraemia [Recovered/Resolved]
  - Craniocerebral injury [Unknown]
  - Dehydration [Unknown]
  - Fall [Unknown]
  - Hypokalaemia [Unknown]
